FAERS Safety Report 25686757 (Version 2)
Quarter: 2025Q4

REPORT INFORMATION
  Report Type: Spontaneous
  Country: US (occurrence: US)
  Receive Date: 20250816
  Receipt Date: 20251018
  Transmission Date: 20260118
  Serious: Yes (Other)
  Sender: GRAVITI PHARMACEUTICALS PRIVATE LIMITED
  Company Number: US-GRAVITIPHARMA-GRA-2508-US-LIT-0369

PATIENT
  Age: 73 Year
  Sex: Male
  Weight: 110.22 kg

DRUGS (11)
  1. AMLODIPINE [Suspect]
     Active Substance: AMLODIPINE BESYLATE
     Indication: Hypertension
     Route: 065
  2. AMLODIPINE [Suspect]
     Active Substance: AMLODIPINE BESYLATE
     Indication: Obesity
  3. CARVEDILOL [Suspect]
     Active Substance: CARVEDILOL
     Indication: Hypertension
     Route: 065
  4. CARVEDILOL [Suspect]
     Active Substance: CARVEDILOL
     Indication: Obesity
  5. SEMAGLUTIDE [Suspect]
     Active Substance: SEMAGLUTIDE
     Indication: Hypertension
     Dosage: (2MG/1.5ML)
     Route: 065
     Dates: start: 202304
  6. SEMAGLUTIDE [Suspect]
     Active Substance: SEMAGLUTIDE
     Indication: Obesity
     Dosage: (2MG/1.5ML)
     Route: 065
     Dates: start: 202305
  7. SEMAGLUTIDE [Suspect]
     Active Substance: SEMAGLUTIDE
     Dosage: (4MG/3MM)
     Route: 065
     Dates: start: 202306
  8. SEMAGLUTIDE [Suspect]
     Active Substance: SEMAGLUTIDE
     Dosage: (8MG/3MM)
     Route: 065
     Dates: start: 202310
  9. HYDROCHLOROTHIAZIDE [Suspect]
     Active Substance: HYDROCHLOROTHIAZIDE
     Indication: Hypertension
     Route: 065
  10. HYDROCHLOROTHIAZIDE [Suspect]
     Active Substance: HYDROCHLOROTHIAZIDE
     Indication: Obesity
  11. ASPIRIN [Concomitant]
     Active Substance: ASPIRIN
     Indication: Product used for unknown indication
     Route: 065

REACTIONS (3)
  - Optic ischaemic neuropathy [Recovered/Resolved]
  - Orthostatic hypotension [Recovered/Resolved]
  - Weight control [Unknown]
